FAERS Safety Report 12945464 (Version 1)
Quarter: 2016Q4

REPORT INFORMATION
  Report Type: Spontaneous
  Country: TR (occurrence: TR)
  Receive Date: 20161116
  Receipt Date: 20161116
  Transmission Date: 20170207
  Serious: Yes (Hospitalization, Other)
  Sender: FDA-Public Use
  Company Number: TR-MACLEODS PHARMACEUTICALS US LTD-MAC2016003541

PATIENT

DRUGS (2)
  1. LEVOFLOXACIN. [Suspect]
     Active Substance: LEVOFLOXACIN
     Indication: CHRONIC OBSTRUCTIVE PULMONARY DISEASE
     Dosage: 500 MG, UNK (500 MG TABLET)
     Route: 065
  2. LEVOFLOXACIN. [Suspect]
     Active Substance: LEVOFLOXACIN
     Indication: BRONCHITIS
     Dosage: UNK
     Route: 051

REACTIONS (9)
  - Blister [Recovered/Resolved]
  - Rash [Recovered/Resolved]
  - Burning sensation [Recovered/Resolved]
  - Skin hyperpigmentation [Recovering/Resolving]
  - Rash erythematous [Recovered/Resolved]
  - Fixed drug eruption [Recovered/Resolved]
  - Pruritus [Recovered/Resolved]
  - Dermatitis bullous [Recovered/Resolved]
  - Skin lesion [Recovered/Resolved]
